FAERS Safety Report 17443717 (Version 1)
Quarter: 2020Q1

REPORT INFORMATION
  Report Type: Spontaneous
  Country: US (occurrence: US)
  Receive Date: 20200220
  Receipt Date: 20200220
  Transmission Date: 20200409
  Serious: Yes (Other)
  Sender: FDA-Public Use
  Company Number: None

PATIENT
  Age: 47 Year
  Sex: Male
  Weight: 103.5 kg

DRUGS (1)
  1. OXYCODONE [Suspect]
     Active Substance: OXYCODONE
     Indication: PAIN
     Route: 048

REACTIONS (4)
  - Product substitution issue [None]
  - Malaise [None]
  - Inadequate analgesia [None]
  - Drug withdrawal syndrome [None]

NARRATIVE: CASE EVENT DATE: 20200213
